FAERS Safety Report 25017950 (Version 3)
Quarter: 2025Q1

REPORT INFORMATION
  Report Type: Spontaneous
  Country: ES (occurrence: ES)
  Receive Date: 20250227
  Receipt Date: 20250321
  Transmission Date: 20250408
  Serious: Yes (Disabling, Other)
  Sender: AUROBINDO
  Company Number: ES-MLMSERVICE-20250205-PI396317-00082-3

PATIENT
  Age: 1 Year
  Sex: Female

DRUGS (9)
  1. CARBOPLATIN [Suspect]
     Active Substance: CARBOPLATIN
     Indication: Congenital retinoblastoma
     Route: 042
  2. MELPHALAN [Suspect]
     Active Substance: MELPHALAN
     Indication: Congenital retinoblastoma
     Route: 013
  3. MELPHALAN [Suspect]
     Active Substance: MELPHALAN
     Indication: Metastatic neoplasm
  4. ETOPOSIDE [Suspect]
     Active Substance: ETOPOSIDE
     Indication: Congenital retinoblastoma
     Route: 042
  5. ETOPOSIDE [Suspect]
     Active Substance: ETOPOSIDE
     Dosage: 120 MILLIGRAM/SQ. METER, ONCE A DAY (ON D1 AND 2)
     Route: 042
  6. ETOPOSIDE [Suspect]
     Active Substance: ETOPOSIDE
     Route: 065
  7. VINCRISTINE [Suspect]
     Active Substance: VINCRISTINE
     Indication: Congenital retinoblastoma
     Route: 042
  8. TOPOTECAN [Suspect]
     Active Substance: TOPOTECAN HYDROCHLORIDE
     Indication: Congenital retinoblastoma
     Route: 013
  9. TOPOTECAN [Suspect]
     Active Substance: TOPOTECAN HYDROCHLORIDE
     Indication: Metastatic neoplasm
     Route: 013

REACTIONS (7)
  - Hypoacusis [Unknown]
  - Retinal detachment [Unknown]
  - Glaucoma [Unknown]
  - Blindness [Unknown]
  - Deafness bilateral [Unknown]
  - Deafness neurosensory [Unknown]
  - Off label use [Unknown]
